FAERS Safety Report 22590216 (Version 1)
Quarter: 2023Q2

REPORT INFORMATION
  Report Type: Spontaneous
  Country: US (occurrence: None)
  Receive Date: 20230609
  Receipt Date: 20230609
  Transmission Date: 20230721
  Serious: Yes (Other)
  Sender: FDA-Public Use
  Company Number: None

PATIENT
  Age: 65 Year
  Sex: Male
  Weight: 100 kg

DRUGS (2)
  1. EVOLOCUMAB [Suspect]
     Active Substance: EVOLOCUMAB
     Indication: Hyperlipidaemia
     Dosage: 420 MG OTHER SUBCUTANEOUS?
     Route: 058
     Dates: start: 20221120, end: 20221220
  2. GOLIMUMAB [Concomitant]
     Active Substance: GOLIMUMAB
     Dates: start: 20220919

REACTIONS (5)
  - Dermatitis [None]
  - Staphylococcal infection [None]
  - Blood pressure increased [None]
  - Angina pectoris [None]
  - Low density lipoprotein increased [None]

NARRATIVE: CASE EVENT DATE: 20221220
